FAERS Safety Report 8393424-1 (Version None)
Quarter: 2012Q2

REPORT INFORMATION
  Report Type: 
  Country: None (occurrence: None)
  Receive Date: 20120529
  Receipt Date: 20120522
  Transmission Date: 20120825
  Serious: No
  Sender: FDA-Public Use
  Company Number: US-BAYER-2012-051560

PATIENT
  Age: 73 Year
  Sex: Female
  Weight: 91 kg

DRUGS (1)
  1. ALEVE (CAPLET) [Suspect]
     Dosage: 2 UNIT TAB PRN
     Route: 048

REACTIONS (2)
  - BLOOD DISORDER [None]
  - NO ADVERSE EVENT [None]
